FAERS Safety Report 24723335 (Version 1)
Quarter: 2024Q4

REPORT INFORMATION
  Report Type: Spontaneous
  Country: GB (occurrence: GB)
  Receive Date: 20241211
  Receipt Date: 20241211
  Transmission Date: 20250115
  Serious: Yes (Other)
  Sender: PURDUE
  Company Number: GB-MHRA-TPP50894506C6216586YC1733233416459

PATIENT
  Age: 78 Year
  Sex: Female

DRUGS (1)
  1. OXYCODONE HYDROCHLORIDE [Suspect]
     Active Substance: OXYCODONE HYDROCHLORIDE
     Indication: Ill-defined disorder
     Dosage: 5 MILLILITER
     Route: 065

REACTIONS (3)
  - Visual impairment [Unknown]
  - Vomiting [Recovered/Resolved]
  - Nausea [Recovered/Resolved]
